FAERS Safety Report 16092275 (Version 2)
Quarter: 2019Q1

REPORT INFORMATION
  Report Type: Spontaneous
  Country: US (occurrence: US)
  Receive Date: 20190319
  Receipt Date: 20190325
  Transmission Date: 20190418
  Serious: No
  Sender: FDA-Public Use
  Company Number: US-JNJFOC-20190305494

PATIENT

DRUGS (2)
  1. METHOTREXATE. [Concomitant]
     Active Substance: METHOTREXATE
     Route: 065
  2. STELARA [Suspect]
     Active Substance: USTEKINUMAB
     Indication: PRODUCT USED FOR UNKNOWN INDICATION
     Route: 058
     Dates: start: 20170525

REACTIONS (1)
  - Drug ineffective [Unknown]
